FAERS Safety Report 7581354-4 (Version None)
Quarter: 2011Q2

REPORT INFORMATION
  Report Type: 
  Country: None (occurrence: None)
  Receive Date: 20110629
  Receipt Date: 20110620
  Transmission Date: 20111010
  Serious: Yes (Hospitalization)
  Sender: FDA-Public Use
  Company Number: FR-BAXTER-2010BH015406

PATIENT
  Age: 71 Year
  Sex: Male
  Weight: 100 kg

DRUGS (8)
  1. IFOSFAMIDE [Suspect]
     Indication: LYMPHOMA
     Route: 042
     Dates: start: 20100420, end: 20100421
  2. MESNA [Suspect]
     Indication: LYMPHOMA
     Route: 042
     Dates: start: 20100420, end: 20100421
  3. ETOPOSIDE [Suspect]
     Indication: LYMPHOMA
     Route: 042
     Dates: start: 20100420, end: 20100421
  4. LENOGRASTIM [Concomitant]
     Indication: NEUTROPENIA
     Route: 058
     Dates: start: 20100422, end: 20100506
  5. VORICONAZOLE [Suspect]
     Indication: SYSTEMIC CANDIDA
     Route: 048
     Dates: start: 20100311, end: 20100412
  6. VORICONAZOLE [Suspect]
     Route: 042
     Dates: start: 20100302, end: 20100311
  7. ANIDULAFUNGIN [Suspect]
     Route: 042
     Dates: start: 20100302, end: 20110302
  8. ANIDULAFUNGIN [Suspect]
     Indication: SYSTEMIC CANDIDA
     Route: 042
     Dates: start: 20100303, end: 20100325

REACTIONS (1)
  - KLEBSIELLA BACTERAEMIA [None]
